FAERS Safety Report 9979062 (Version 1)
Quarter: 2014Q1

REPORT INFORMATION
  Report Type: Report from Study
  Country: US (occurrence: US)
  Receive Date: 20140306
  Receipt Date: 20140306
  Transmission Date: 20141002
  Serious: No
  Sender: FDA-Public Use
  Company Number: US-ABBVIE-13P-163-1169949-00

PATIENT
  Age: 32 Year
  Sex: Female

DRUGS (7)
  1. HUMIRA [Suspect]
     Indication: RHEUMATOID ARTHRITIS
     Dates: start: 20131015
  2. PREDNISONE [Concomitant]
     Indication: PRODUCT USED FOR UNKNOWN INDICATION
     Dosage: HIGHER DOSE
  3. PREDNISONE [Concomitant]
     Dosage: AS NEEDED, 2 OR 3 DAYS A WEEK
  4. ALBUTEROL [Concomitant]
     Indication: ASTHMA
  5. ONDANSETRON [Concomitant]
     Indication: NAUSEA
  6. PAROXETINE [Concomitant]
     Indication: DEPRESSION
  7. JUNEL [Concomitant]
     Indication: CONTRACEPTION

REACTIONS (1)
  - Injection site pain [Recovered/Resolved]
